FAERS Safety Report 10615516 (Version 3)
Quarter: 2015Q1

REPORT INFORMATION
  Report Type: Spontaneous
  Country: US (occurrence: US)
  Receive Date: 20141201
  Receipt Date: 20150324
  Transmission Date: 20150720
  Serious: No
  Sender: FDA-Public Use
  Company Number: US-PFIZER INC-2014325351

PATIENT
  Age: 54 Year
  Sex: Female
  Weight: 51.25 kg

DRUGS (2)
  1. TRAMADOL [Concomitant]
     Active Substance: TRAMADOL
     Dosage: UNK
  2. AVINZA [Suspect]
     Active Substance: MORPHINE SULFATE
     Indication: PAIN
     Dosage: 120 MG, DAILY (TWO CAPSULES EACH OF 30 MG IN THE MORNING AND TWO IN THE EVENING)

REACTIONS (3)
  - Somnolence [Unknown]
  - Fatigue [Unknown]
  - Drug ineffective [Unknown]
